FAERS Safety Report 13745005 (Version 1)
Quarter: 2017Q3

REPORT INFORMATION
  Report Type: Spontaneous
  Country: US (occurrence: US)
  Receive Date: 20170711
  Receipt Date: 20170711
  Transmission Date: 20171127
  Serious: Yes (Life-Threatening, Hospitalization, Disabling)
  Sender: FDA-Public Use
  Company Number: None

PATIENT
  Age: 43 Year
  Sex: Female
  Weight: 74.25 kg

DRUGS (2)
  1. CLONAZEPAM. [Suspect]
     Active Substance: CLONAZEPAM
     Indication: STRESS
     Dosage: ?          OTHER STRENGTH:MG;QUANTITY:1 TABLET(S);OTHER FREQUENCY:1 OR 2 TIME PER WK;?
     Route: 048
     Dates: start: 20090701, end: 20140401
  2. MAGNESIUM GLYCINATE [Concomitant]
     Active Substance: MAGNESIUM GLYCINATE

REACTIONS (6)
  - Mental disorder [None]
  - Quality of life decreased [None]
  - Emotional disorder [None]
  - Withdrawal syndrome [None]
  - Cognitive disorder [None]
  - Memory impairment [None]

NARRATIVE: CASE EVENT DATE: 20140404
